FAERS Safety Report 5722306-6 (Version None)
Quarter: 2008Q2

REPORT INFORMATION
  Report Type: 
  Country: None (occurrence: None)
  Receive Date: 20080429
  Receipt Date: 20070629
  Transmission Date: 20081010
  Serious: No
  Sender: FDA-Public Use
  Company Number: US-ASTRAZENECA-2007UW15553

PATIENT
  Age: 63 Year
  Sex: Female
  Weight: 62.1 kg

DRUGS (4)
  1. NEXIUM [Suspect]
     Indication: GASTROOESOPHAGEAL REFLUX DISEASE
     Route: 048
  2. AVAPRO [Concomitant]
  3. CADUET [Concomitant]
  4. GEODON [Concomitant]

REACTIONS (2)
  - DRUG INEFFECTIVE [None]
  - SENSATION OF FOREIGN BODY [None]
